FAERS Safety Report 9752112 (Version 2)
Quarter: 2016Q2

REPORT INFORMATION
  Report Type: Report from Study
  Country: IL (occurrence: IL)
  Receive Date: 20131213
  Receipt Date: 20160608
  Transmission Date: 20160815
  Serious: Yes (Other)
  Sender: FDA-Public Use
  Company Number: PHHY2013IL145756

PATIENT
  Age: 69 Year
  Sex: Male

DRUGS (2)
  1. SANDOSTATIN LAR DEPOT [Suspect]
     Active Substance: OCTREOTIDE ACETATE
     Indication: ACROMEGALY
     Dosage: 30 MG, Q3W
     Route: 030
  2. SANDOSTATIN LAR DEPOT [Suspect]
     Active Substance: OCTREOTIDE ACETATE
     Dosage: 30 MG, QMO (Q4W)
     Route: 030

REACTIONS (7)
  - Joint swelling [Unknown]
  - Gout [Not Recovered/Not Resolved]
  - Dysstasia [Unknown]
  - Chronic obstructive pulmonary disease [Unknown]
  - Pain in extremity [Unknown]
  - Gout [Recovered/Resolved]
  - Inappropriate schedule of drug administration [Unknown]

NARRATIVE: CASE EVENT DATE: 20160603
